FAERS Safety Report 20024236 (Version 2)
Quarter: 2021Q4

REPORT INFORMATION
  Report Type: Spontaneous
  Country: CA (occurrence: CA)
  Receive Date: 20211102
  Receipt Date: 20211216
  Transmission Date: 20220303
  Serious: Yes (Hospitalization)
  Sender: FDA-Public Use
  Company Number: CA-GLAXOSMITHKLINE-CA2021AMR222794

PATIENT
  Age: 66 Year
  Sex: Female

DRUGS (1)
  1. AMBRISENTAN [Suspect]
     Active Substance: AMBRISENTAN
     Indication: Pulmonary arterial hypertension
     Dosage: 10 MG
     Route: 065
     Dates: start: 20200131

REACTIONS (3)
  - Dyspnoea [Recovering/Resolving]
  - Fatigue [Unknown]
  - Back pain [Unknown]
